FAERS Safety Report 7864892-6 (Version None)
Quarter: 2011Q4

REPORT INFORMATION
  Report Type: 
  Country: None (occurrence: None)
  Receive Date: 20111028
  Receipt Date: 20100913
  Transmission Date: 20120403
  Serious: No
  Sender: FDA-Public Use
  Company Number: US-GLAXOSMITHKLINE-A0880861A

PATIENT
  Age: 81 Year
  Sex: Female

DRUGS (8)
  1. COSOPT [Concomitant]
  2. CLONIDINE [Concomitant]
  3. ADVAIR DISKUS 100/50 [Suspect]
     Indication: DYSPNOEA
     Dosage: 1PUFF TWICE PER DAY
     Route: 055
     Dates: start: 20100909, end: 20100101
  4. TRAMADOL HCL [Concomitant]
  5. DOXAZOSIN MESYLATE [Concomitant]
  6. ASPIRIN [Concomitant]
  7. XALATAN [Concomitant]
  8. LEVOTHYROXINE SODIUM [Concomitant]

REACTIONS (2)
  - DYSPHONIA [None]
  - OROPHARYNGEAL PAIN [None]
